FAERS Safety Report 8179944-3 (Version None)
Quarter: 2012Q1

REPORT INFORMATION
  Report Type: 
  Country: None (occurrence: None)
  Receive Date: 20120302
  Receipt Date: 20120220
  Transmission Date: 20120608
  Serious: Yes (Disabling, Other)
  Sender: FDA-Public Use
  Company Number: FR-BRISTOL-MYERS SQUIBB COMPANY-16418394

PATIENT
  Age: 1 Day
  Sex: Male

DRUGS (2)
  1. GLUCOPHAGE [Suspect]
     Route: 064
     Dates: start: 20080301
  2. MEDIATOR [Suspect]
     Route: 064
     Dates: start: 20080301

REACTIONS (2)
  - PREMATURE BABY [None]
  - AUTISM SPECTRUM DISORDER [None]
